FAERS Safety Report 10598360 (Version 1)
Quarter: 2014Q4

REPORT INFORMATION
  Report Type: Spontaneous
  Country: FR (occurrence: None)
  Receive Date: 20141119
  Receipt Date: 20141119
  Transmission Date: 20150529
  Serious: Yes (Other)
  Sender: FDA-Public Use
  Company Number: 2014-20722

PATIENT
  Age: 81 Year
  Sex: Male

DRUGS (1)
  1. EYLEA [Suspect]
     Active Substance: AFLIBERCEPT
     Indication: PRODUCT USED FOR UNKNOWN INDICATION
     Dosage: THE FIRST THREE INJECTIONS

REACTIONS (5)
  - Blepharitis [None]
  - Vitreous floaters [None]
  - Eye swelling [None]
  - Eye haemorrhage [None]
  - Eye pain [None]

NARRATIVE: CASE EVENT DATE: 2014
